FAERS Safety Report 5410817-2 (Version None)
Quarter: 2007Q3

REPORT INFORMATION
  Report Type: 
  Country: None (occurrence: None)
  Receive Date: 20070810
  Receipt Date: 20070808
  Transmission Date: 20080115
  Serious: Yes (Life-Threatening, Hospitalization)
  Sender: FDA-Public Use
  Company Number: PHEH2007US10498

PATIENT
  Age: 48 Year
  Sex: Female
  Weight: 58.956 kg

DRUGS (2)
  1. DIOVAN [Suspect]
     Indication: HYPERTENSION
     Dosage: 80 MG, QD
     Route: 048
     Dates: start: 19990101
  2. YASMIN [Suspect]
     Dosage: UNK, QD
     Route: 048
     Dates: start: 20070101, end: 20070701

REACTIONS (6)
  - ARRHYTHMIA [None]
  - BRADYCARDIA [None]
  - CARDIAC PACEMAKER INSERTION [None]
  - HEART INJURY [None]
  - SINUS ARRHYTHMIA [None]
  - SYNCOPE [None]
